FAERS Safety Report 9268065 (Version 1)
Quarter: 2013Q2

REPORT INFORMATION
  Report Type: Spontaneous
  Country: US (occurrence: US)
  Receive Date: 20130502
  Receipt Date: 20130502
  Transmission Date: 20140414
  Serious: No
  Sender: FDA-Public Use
  Company Number: US-ALEXION-A201201435

PATIENT
  Age: 65 Year
  Sex: Male
  Weight: 92.1 kg

DRUGS (5)
  1. SOLIRIS 300MG [Suspect]
     Indication: PAROXYSMAL NOCTURNAL HAEMOGLOBINURIA
     Dosage: 900 MG Q12D
     Route: 042
     Dates: start: 20110103
  2. SOLIRIS 300MG [Suspect]
     Dosage: 600 MG, QW X 4 WEEKS
     Route: 042
     Dates: start: 20101207, end: 20110103
  3. MULTIVITAMIN [Concomitant]
     Dosage: 1 TAB QD
     Route: 048
  4. FISH OIL [Concomitant]
     Dosage: 1 TAB QD
     Route: 048
  5. ASPIRIN [Concomitant]
     Dosage: 81 MG, QD
     Route: 048

REACTIONS (1)
  - Miliaria [Recovered/Resolved]
